FAERS Safety Report 7245509-0 (Version None)
Quarter: 2011Q1

REPORT INFORMATION
  Report Type: 
  Country: None (occurrence: None)
  Receive Date: 20110118
  Receipt Date: 20110113
  Transmission Date: 20110831
  Serious: No
  Sender: FDA-Public Use
  Company Number: 11-021

PATIENT

DRUGS (2)
  1. ACTAMINOPHEN [Suspect]
     Indication: OVERDOSE
     Dosage: MATERNAL 12.5 G APAP, FETAL EXPOSURE @27 WEEKS (3RD TRIMESTER)
  2. IBUPROFEN [Suspect]
     Indication: OVERDOSE
     Dosage: 3.2-12.8 G IBUPROFEN, FETAL EXPOSURE @27 WEEKS (3RD TRIMESTER)

REACTIONS (2)
  - PALATAL DISORDER [None]
  - MATERNAL DRUGS AFFECTING FOETUS [None]
